FAERS Safety Report 4957119-6 (Version None)
Quarter: 2006Q1

REPORT INFORMATION
  Report Type: 
  Country: None (occurrence: None)
  Receive Date: 20060329
  Receipt Date: 20051026
  Transmission Date: 20060701
  Serious: Yes (Hospitalization, Disabling, Other)
  Sender: FDA-Public Use
  Company Number: US-MERCK-0510USA09484

PATIENT
  Age: 51 Year
  Sex: Male
  Weight: 91 kg

DRUGS (9)
  1. VIOXX [Suspect]
     Indication: MUSCULOSKELETAL DISCOMFORT
     Route: 048
     Dates: start: 20030201, end: 20030901
  2. VIOXX [Suspect]
     Route: 048
     Dates: start: 20030201, end: 20030901
  3. VIOXX [Suspect]
     Route: 048
     Dates: start: 20030201, end: 20030901
  4. VIOXX [Suspect]
     Route: 048
     Dates: start: 20030201, end: 20030901
  5. VIOXX [Suspect]
     Route: 048
     Dates: start: 20030201, end: 20030901
  6. VIOXX [Suspect]
     Route: 048
     Dates: start: 20030201, end: 20030901
  7. VIOXX [Suspect]
     Route: 048
     Dates: start: 20030201, end: 20030901
  8. VIOXX [Suspect]
     Route: 048
     Dates: start: 20030201, end: 20030901
  9. TYLENOL (CAPLET) [Concomitant]
     Indication: PAIN
     Route: 048

REACTIONS (7)
  - ADVERSE EVENT [None]
  - ANXIETY [None]
  - CARDIOVASCULAR DISORDER [None]
  - DEPRESSION [None]
  - INJURY [None]
  - MYOCARDIAL INFARCTION [None]
  - PRESCRIBED OVERDOSE [None]
